FAERS Safety Report 5481234-4 (Version None)
Quarter: 2007Q4

REPORT INFORMATION
  Report Type: 
  Country: None (occurrence: None)
  Receive Date: 20071010
  Receipt Date: 20071002
  Transmission Date: 20080405
  Serious: Yes (Hospitalization)
  Sender: FDA-Public Use
  Company Number: PHBS2007IN16383

PATIENT
  Age: 3 Month
  Sex: Male
  Weight: 4 kg

DRUGS (5)
  1. OCTREOTIDE ACETATE [Suspect]
     Indication: HYPOGLYCAEMIA
     Dosage: 0.5 UG, Q6H
     Route: 058
  2. FENTANYL [Concomitant]
     Dosage: 10 UG/D
     Route: 042
  3. THIOPENTONE [Concomitant]
     Dosage: 30 MG/D
     Route: 042
  4. ATRACURIUM BESYLATE [Concomitant]
     Dosage: 2 MG/D
     Route: 042
  5. ISOFLURANE [Concomitant]

REACTIONS (6)
  - BLOOD GLUCOSE INCREASED [None]
  - BLOOD PH DECREASED [None]
  - BLOOD PRESSURE DECREASED [None]
  - BRADYCARDIA [None]
  - HEART RATE DECREASED [None]
  - HYPERGLYCAEMIA [None]
